FAERS Safety Report 19395457 (Version 2)
Quarter: 2021Q2

REPORT INFORMATION
  Report Type: Report from Study
  Country: KR (occurrence: KR)
  Receive Date: 20210609
  Receipt Date: 20210627
  Transmission Date: 20210717
  Serious: Yes (Other)
  Sender: FDA-Public Use
  Company Number: NVSC2021KR124543

PATIENT
  Sex: Female
  Weight: 59.5 kg

DRUGS (25)
  1. RYDAPT [Suspect]
     Active Substance: MIDOSTAURIN
     Indication: ACUTE MYELOID LEUKAEMIA
     Dosage: 50 MG, BID
     Route: 048
     Dates: start: 20210405, end: 20210419
  2. DAUNORUBICIN [Concomitant]
     Active Substance: DAUNORUBICIN
     Indication: ACUTE MYELOID LEUKAEMIA
     Dosage: 97.2 MG
     Route: 042
     Dates: start: 20210329, end: 20210331
  3. CYTARABINE. [Concomitant]
     Active Substance: CYTARABINE
     Dosage: 1570 MG (INJ 2000MG20MLV)
     Route: 042
     Dates: start: 20210524, end: 20210529
  4. MORPHINE SULFATE. [Concomitant]
     Active Substance: MORPHINE SULFATE
     Indication: PROPHYLAXIS
     Dosage: 5 MG
     Route: 042
     Dates: start: 20210411
  5. GLUCOPHAGE [Concomitant]
     Active Substance: METFORMIN HYDROCHLORIDE
     Indication: TYPE 2 DIABETES MELLITUS
     Dosage: 2 DF
     Route: 048
     Dates: start: 20210427
  6. JANUVIA [Concomitant]
     Active Substance: SITAGLIPTIN PHOSPHATE
     Indication: TYPE 2 DIABETES MELLITUS
     Dosage: 1 DF
     Route: 048
     Dates: start: 20210427
  7. ADIPAM [Concomitant]
     Indication: RASH
     Dosage: 2 DF
     Route: 048
     Dates: start: 20210527, end: 20210602
  8. DIOVAN [Concomitant]
     Active Substance: VALSARTAN
     Indication: HYPERTENSION
     Dosage: 1 DF
     Route: 048
     Dates: start: 20210529
  9. RYDAPT [Suspect]
     Active Substance: MIDOSTAURIN
     Dosage: 50 MG, BID
     Route: 048
     Dates: start: 20210531
  10. CYTARABINE. [Concomitant]
     Active Substance: CYTARABINE
     Dosage: UNK
     Route: 065
  11. UBACSIN [Concomitant]
     Indication: RASH
     Dosage: 3 G
     Route: 042
     Dates: start: 20210527
  12. OZEX [Concomitant]
     Indication: PLEURAL EFFUSION
     Dosage: 2 DF
     Route: 048
     Dates: start: 20210508, end: 20210521
  13. TARGIN [Concomitant]
     Active Substance: NALOXONE HYDROCHLORIDE\OXYCODONE HYDROCHLORIDE
     Indication: PROPHYLAXIS
     Dosage: 2 DF
     Route: 048
     Dates: start: 20210418, end: 20210604
  14. TYLENOL 8HR [Concomitant]
     Active Substance: ACETAMINOPHEN
     Indication: PROPHYLAXIS
     Dosage: 3 DF
     Route: 048
     Dates: start: 20210329
  15. VACRAX [Concomitant]
     Indication: PROPHYLAXIS
     Dosage: 2 DF
     Route: 048
     Dates: start: 20210329
  16. CYTARABINE. [Concomitant]
     Active Substance: CYTARABINE
     Indication: ACUTE MYELOID LEUKAEMIA
     Dosage: 324 MG
     Route: 042
     Dates: start: 20210329, end: 20210403
  17. ITOMED [Concomitant]
     Indication: PROPHYLAXIS
     Dosage: 1 DF
     Route: 048
     Dates: start: 20210411
  18. NORVASC [Concomitant]
     Active Substance: AMLODIPINE BESYLATE
     Indication: HYPERTENSION
     Dosage: 1 DF
     Route: 048
     Dates: start: 20210530
  19. AZEPTIN [Concomitant]
     Active Substance: AZELASTINE HYDROCHLORIDE
     Indication: RASH
     Dosage: 2 DF
     Route: 048
     Dates: start: 20210527, end: 20210602
  20. FUNAZOL [Concomitant]
     Indication: PLEURAL EFFUSION
     Dosage: 1 DF
     Route: 048
     Dates: start: 20210329
  21. GASTER [Concomitant]
     Active Substance: FAMOTIDINE
     Indication: PROPHYLAXIS
     Dosage: 2 DF
     Route: 048
     Dates: start: 20210317
  22. TOPISOL MILK LOTION [Concomitant]
     Indication: RASH
     Dosage: UNK UNK, BID
     Route: 062
     Dates: start: 20210527
  23. DAUNORUBICIN [Concomitant]
     Active Substance: DAUNORUBICIN
     Dosage: UNK
     Route: 065
  24. MAXIPIME [Concomitant]
     Active Substance: CEFEPIME HYDROCHLORIDE
     Indication: PROPHYLAXIS
     Dosage: 6 G
     Route: 042
     Dates: start: 20210316, end: 20210408
  25. SEPTRIN [Concomitant]
     Active Substance: SULFAMETHOXAZOLE\TRIMETHOPRIM
     Indication: PLEURAL EFFUSION
     Dosage: 2 DF
     Route: 048
     Dates: start: 20210421, end: 20210604

REACTIONS (1)
  - Leukaemic retinopathy [Unknown]

NARRATIVE: CASE EVENT DATE: 20210427
